FAERS Safety Report 10183999 (Version 1)
Quarter: 2014Q2

REPORT INFORMATION
  Report Type: Spontaneous
  Country: US (occurrence: US)
  Receive Date: 20140520
  Receipt Date: 20140520
  Transmission Date: 20141212
  Serious: Yes (Hospitalization)
  Sender: FDA-Public Use
  Company Number: US-GLAXOSMITHKLINE-A1073801A

PATIENT
  Age: 60 Year
  Sex: Female

DRUGS (15)
  1. ZOFRAN [Suspect]
     Indication: NAUSEA
     Route: 065
  2. CREON [Suspect]
     Indication: PRODUCT USED FOR UNKNOWN INDICATION
     Route: 065
  3. ATENOLOL [Concomitant]
  4. CLONAZEPAM [Concomitant]
  5. COUMADIN [Concomitant]
  6. AMLODIPINE [Concomitant]
  7. ENOXAPARIN [Concomitant]
  8. FLUOXETINE [Concomitant]
  9. GABAPENTIN [Concomitant]
  10. HYDROMORPHONE [Concomitant]
  11. PRILOSEC [Concomitant]
  12. LANTUS [Concomitant]
  13. INSULIN [Concomitant]
  14. MICARDIS [Concomitant]
  15. PRAVASTATIN [Concomitant]

REACTIONS (4)
  - Serotonin syndrome [Recovered/Resolved]
  - Dyskinesia [Recovered/Resolved]
  - Speech disorder [Recovered/Resolved]
  - Hyperhidrosis [Recovered/Resolved]
